FAERS Safety Report 16267812 (Version 4)
Quarter: 2020Q2

REPORT INFORMATION
  Report Type: Report from Study
  Country: BR (occurrence: BR)
  Receive Date: 20190503
  Receipt Date: 20200629
  Transmission Date: 20200713
  Serious: Yes (Hospitalization, Other)
  Sender: FDA-Public Use
  Company Number: BR-BIOGEN-2019BI00731429

PATIENT
  Age: 45 Year
  Sex: Male

DRUGS (5)
  1. AVONEX PEN [Suspect]
     Active Substance: INTERFERON BETA-1A
  2. AVONEX PEN [Suspect]
     Active Substance: INTERFERON BETA-1A
     Route: 030
     Dates: start: 20120328
  3. AVONEX PEN [Suspect]
     Active Substance: INTERFERON BETA-1A
     Indication: MULTIPLE SCLEROSIS
     Route: 030
     Dates: start: 201203
  4. AVONEX PEN [Suspect]
     Active Substance: INTERFERON BETA-1A
  5. FENOBARBITAL [Concomitant]
     Active Substance: PHENOBARBITAL
     Indication: PRODUCT USED FOR UNKNOWN INDICATION
     Dosage: 300 MG, WITH 100 MG 1 CP IN THE MORNING AND 2 CP AT NIGHT
     Route: 065

REACTIONS (13)
  - Cerebral calcification [Recovered/Resolved]
  - Inappropriate schedule of product administration [Unknown]
  - Tuberculosis [Recovered/Resolved]
  - Injection site bruising [Not Recovered/Not Resolved]
  - Injection site haemorrhage [Unknown]
  - Hyperthyroidism [Unknown]
  - Pulmonary embolism [Not Recovered/Not Resolved]
  - Coma [Not Recovered/Not Resolved]
  - Headache [Recovered/Resolved]
  - Haemorrhagic stroke [Recovered/Resolved]
  - Brain neoplasm malignant [Recovered/Resolved]
  - Calcinosis [Unknown]
  - Seizure [Recovered/Resolved]

NARRATIVE: CASE EVENT DATE: 2014
